FAERS Safety Report 18679328 (Version 1)
Quarter: 2020Q4

REPORT INFORMATION
  Report Type: Spontaneous
  Country: US (occurrence: US)
  Receive Date: 20201230
  Receipt Date: 20201230
  Transmission Date: 20210114
  Serious: Yes (Other)
  Sender: FDA-Public Use
  Company Number: US-SA-2020SA372586

PATIENT

DRUGS (1)
  1. SEVELAMER SALT NOT SPECIFIED [Suspect]
     Active Substance: SEVELAMER
     Indication: HYPERPHOSPHATAEMIA

REACTIONS (5)
  - Intestinal perforation [Unknown]
  - Sepsis [Unknown]
  - Large intestine perforation [Unknown]
  - Diverticular perforation [Unknown]
  - Crystal deposit intestine [Unknown]
